FAERS Safety Report 19877141 (Version 2)
Quarter: 2022Q4

REPORT INFORMATION
  Report Type: Report from Study
  Country: US (occurrence: US)
  Receive Date: 20210923
  Receipt Date: 20221006
  Transmission Date: 20230113
  Serious: Yes (Other)
  Sender: FDA-Public Use
  Company Number: US-TAKEDA-US201930953

PATIENT
  Sex: Male

DRUGS (1)
  1. HUMAN IMMUNOGLOBULIN G [Suspect]
     Active Substance: HUMAN IMMUNOGLOBULIN G
     Indication: Primary immunodeficiency syndrome
     Dosage: UNK
     Route: 042

REACTIONS (8)
  - Pneumonia [Unknown]
  - Hernia [Unknown]
  - Fatigue [Unknown]
  - Lethargy [Unknown]
  - Headache [Unknown]
  - Diarrhoea [Unknown]
  - Urinary tract disorder [Unknown]
  - Therapy interrupted [Unknown]
